FAERS Safety Report 12965476 (Version 1)
Quarter: 2016Q4

REPORT INFORMATION
  Report Type: Spontaneous
  Country: SE (occurrence: SE)
  Receive Date: 20161122
  Receipt Date: 20161122
  Transmission Date: 20170207
  Serious: Yes (Other)
  Sender: FDA-Public Use
  Company Number: SE-JNJFOC-20161116462

PATIENT
  Sex: Male

DRUGS (2)
  1. IMBRUVICA [Suspect]
     Active Substance: IBRUTINIB
     Indication: CHRONIC LYMPHOCYTIC LEUKAEMIA
     Route: 048
  2. WARAN [Concomitant]
     Active Substance: WARFARIN SODIUM
     Route: 065
     Dates: start: 201605

REACTIONS (3)
  - Myocardial infarction [Unknown]
  - Pulmonary oedema [Unknown]
  - Lymphocytosis [Unknown]

NARRATIVE: CASE EVENT DATE: 2016
